FAERS Safety Report 8859464 (Version 1)
Quarter: 2012Q4

REPORT INFORMATION
  Report Type: Spontaneous
  Country: DK (occurrence: None)
  Receive Date: 20121023
  Receipt Date: 20121023
  Transmission Date: 20130627
  Serious: Yes (Other)
  Sender: FDA-Public Use
  Company Number: 2012MA012415

PATIENT
  Age: 57 Year
  Sex: Female

DRUGS (3)
  1. IRINOTECAN HYDROCHLORIDE [Suspect]
     Indication: ADENOCARCINOMA OF COLON STAGE IV
     Route: 058
     Dates: start: 20120530, end: 20120919
  2. ERBITUX [Suspect]
     Indication: ADENOCARCINOMA OF COLON STAGE IV
     Route: 042
     Dates: start: 20120613, end: 20120919
  3. FLUOROURACIL (FLUOROURACIL) [Suspect]
     Indication: ADENOCARCINOMA OF COLON STAGE IV
     Route: 042
     Dates: start: 20120530, end: 20120919

REACTIONS (2)
  - No therapeutic response [None]
  - Drug ineffective [None]
